FAERS Safety Report 17283586 (Version 1)
Quarter: 2020Q1

REPORT INFORMATION
  Report Type: Spontaneous
  Country: US (occurrence: US)
  Receive Date: 20191230
  Receipt Date: 20191230
  Transmission Date: 20200409
  Serious: Yes (Death)
  Sender: FDA-Public Use
  Company Number: None

PATIENT
  Age: 80 Year
  Sex: Male

DRUGS (2)
  1. WARFARIN (WARFARIN NA (EXELAN) 2MG TAB [Suspect]
     Active Substance: WARFARIN
     Dosage: ?          OTHER FREQUENCY:MF - DAILY;?
     Route: 048
     Dates: start: 20180516, end: 20190306
  2. WARFARIN (WARFARIN NA (EXELAN) 3MG TAB [Suspect]
     Active Substance: WARFARIN
     Dosage: ?          OTHER FREQUENCY:3MG REST OF THE WE;?
     Route: 048
     Dates: start: 20180516, end: 20190306

REACTIONS (5)
  - Haemorrhage intracranial [None]
  - Asthenia [None]
  - Haematemesis [None]
  - Lethargy [None]
  - Vomiting [None]

NARRATIVE: CASE EVENT DATE: 20190306
